FAERS Safety Report 5337828-X (Version None)
Quarter: 2007Q2

REPORT INFORMATION
  Report Type: 
  Country: None (occurrence: None)
  Receive Date: 20070308
  Receipt Date: 20061228
  Transmission Date: 20071010
  Serious: No
  Sender: FDA-Public Use
  Company Number: 2007-BP-00017BP

PATIENT
  Sex: Female

DRUGS (3)
  1. SPIRIVA [Suspect]
     Indication: CHRONIC OBSTRUCTIVE PULMONARY DISEASE
     Dosage: 18 MCG (18 MCG, 2 PUFFS FROM ONE CAPSULE), IH
     Route: 055
     Dates: start: 20051227
  2. XOPENEX [Concomitant]
  3. ADVAIR (SERETIDE) [Concomitant]

REACTIONS (1)
  - DYSPNOEA [None]
